FAERS Safety Report 8611886 (Version 4)
Quarter: 2012Q4

REPORT INFORMATION
  Report Type: 
  Country: US (occurrence: US)
  Receive Date: 20120613
  Receipt Date: 20120831
  Transmission Date: 20130627
  Serious: Yes (Life-Threatening, Hospitalization)
  Sender: FDA-Public Use
  Company Number: US-CELGENEUS-163-21880-12061165

PATIENT
  Age: 59 None
  Sex: Female

DRUGS (3)
  1. REVLIMID [Suspect]
     Indication: MULTIPLE MYELOMA
     Dosage: 5 Milligram
     Route: 048
     Dates: start: 201204
  2. REVLIMID [Suspect]
     Dosage: 5 Milligram
     Route: 048
     Dates: start: 20120507, end: 20120516
  3. DEXAMETHASONE [Concomitant]
     Indication: MYELOMA
     Dosage: 40 Milligram
     Route: 048
     Dates: start: 20120410

REACTIONS (3)
  - Anaemia [Recovered/Resolved with Sequelae]
  - Plasma cell myeloma [Recovered/Resolved with Sequelae]
  - Muscle atrophy [Recovered/Resolved with Sequelae]
